FAERS Safety Report 24630769 (Version 1)
Quarter: 2024Q4

REPORT INFORMATION
  Report Type: Spontaneous
  Country: US (occurrence: None)
  Receive Date: 20241116
  Receipt Date: 20241116
  Transmission Date: 20250115
  Serious: Yes (Life-Threatening, Disabling)
  Sender: Public
  Company Number: None

PATIENT
  Age: 35 Year
  Sex: Male
  Weight: 103.5 kg

DRUGS (1)
  1. ALVESCO [Suspect]
     Active Substance: CICLESONIDE
     Dosage: OTHER STRENGTH : MCG?OTHER QUANTITY : 2 PUFF(S)?FREQUENCY : DAILY?
     Dates: start: 20241102, end: 20241116

REACTIONS (7)
  - Dizziness [None]
  - Vomiting [None]
  - Dizziness [None]
  - Chest pain [None]
  - Pain in extremity [None]
  - Lymph node pain [None]
  - Bedridden [None]

NARRATIVE: CASE EVENT DATE: 20241115
